FAERS Safety Report 5612379-3 (Version None)
Quarter: 2008Q1

REPORT INFORMATION
  Report Type: 
  Country: None (occurrence: None)
  Receive Date: 20080204
  Receipt Date: 20080122
  Transmission Date: 20080703
  Serious: Yes (Hospitalization)
  Sender: FDA-Public Use
  Company Number: GB-ROCHE-542966

PATIENT
  Age: 67 Year
  Sex: Male
  Weight: 95.3 kg

DRUGS (2)
  1. ORLISTAT [Suspect]
     Indication: OBESITY
     Route: 048
     Dates: start: 20070529, end: 20071220
  2. SEVERAL UNKNOWN COMEDICATIONS [Concomitant]

REACTIONS (1)
  - TOE AMPUTATION [None]
